FAERS Safety Report 24711380 (Version 1)
Quarter: 2024Q4

REPORT INFORMATION
  Report Type: Spontaneous
  Country: US (occurrence: US)
  Receive Date: 20241209
  Receipt Date: 20241209
  Transmission Date: 20250114
  Serious: Yes (Other)
  Sender: MERCK
  Company Number: US-009507513-2412USA001219

PATIENT
  Age: 52 Year
  Sex: Female

DRUGS (1)
  1. KEYTRUDA [Suspect]
     Active Substance: PEMBROLIZUMAB
     Indication: Invasive ductal breast carcinoma
     Dosage: UNK

REACTIONS (4)
  - Hypothyroidism [Unknown]
  - Thyroiditis [Unknown]
  - Secondary adrenocortical insufficiency [Unknown]
  - Hypophysitis [Unknown]
